FAERS Safety Report 5343322-2 (Version None)
Quarter: 2007Q2

REPORT INFORMATION
  Report Type: 
  Country: None (occurrence: None)
  Receive Date: 20070502
  Receipt Date: 20060731
  Transmission Date: 20071010
  Serious: Yes (Other)
  Sender: FDA-Public Use
  Company Number: PHEH2006US08528

PATIENT
  Age: 63 Year
  Sex: Male
  Weight: 80.7 kg

DRUGS (8)
  1. LOTREL [Suspect]
     Indication: HYPERTENSION
     Dosage: 10/20 MG, QD, ORAL
     Route: 048
     Dates: start: 20060524, end: 20060601
  2. ZETIA [Concomitant]
  3. UROXATRAL [Concomitant]
  4. NORVASC [Concomitant]
  5. PROSCAR [Concomitant]
  6. NEURONTIN [Concomitant]
  7. COZAAR [Concomitant]
  8. AMARYL [Concomitant]

REACTIONS (1)
  - HYPERKALAEMIA [None]
